FAERS Safety Report 19838608 (Version 1)
Quarter: 2021Q3

REPORT INFORMATION
  Report Type: Spontaneous
  Country: US (occurrence: US)
  Receive Date: 20210915
  Receipt Date: 20210915
  Transmission Date: 20211014
  Serious: Yes (Other)
  Sender: FDA-Public Use
  Company Number: None

PATIENT
  Age: 58 Year
  Sex: Male
  Weight: 85.95 kg

DRUGS (1)
  1. EPCLUSA [Suspect]
     Active Substance: SOFOSBUVIR\VELPATASVIR
     Indication: HEPATITIS C

REACTIONS (5)
  - Arthralgia [None]
  - Neck mass [None]
  - Rash erythematous [None]
  - Myalgia [None]
  - Pharyngeal swelling [None]

NARRATIVE: CASE EVENT DATE: 20210907
